FAERS Safety Report 25860888 (Version 1)
Quarter: 2025Q3

REPORT INFORMATION
  Report Type: Spontaneous
  Country: US (occurrence: US)
  Receive Date: 20250929
  Receipt Date: 20250929
  Transmission Date: 20251021
  Serious: No
  Sender: SANOFI AVENTIS
  Company Number: US-SA-2025SA288996

PATIENT
  Sex: Female
  Weight: 75 kg

DRUGS (13)
  1. DUPIXENT [Suspect]
     Active Substance: DUPILUMAB
     Indication: Dermatitis atopic
     Dosage: 200 MG, QOW
     Route: 058
  2. DEXAMETHASONE\TOBRAMYCIN [Concomitant]
     Active Substance: DEXAMETHASONE\TOBRAMYCIN
  3. DIPHENHYDRAMINE HYDROCHLORIDE [Concomitant]
     Active Substance: DIPHENHYDRAMINE HYDROCHLORIDE
  4. LORATADINE [Concomitant]
     Active Substance: LORATADINE
  5. CIPROFLOXACIN HYDROCHLORIDE [Concomitant]
     Active Substance: CIPROFLOXACIN HYDROCHLORIDE
  6. HYDROXYZINE HYDROCHLORIDE [Concomitant]
     Active Substance: HYDROXYZINE HYDROCHLORIDE
  7. CLOBETASOL PROPIONATE [Concomitant]
     Active Substance: CLOBETASOL PROPIONATE
  8. FLUOCINONIDE [Concomitant]
     Active Substance: FLUOCINONIDE
  9. CLOBETASOL [Concomitant]
     Active Substance: CLOBETASOL
  10. TACROLIMUS [Concomitant]
     Active Substance: TACROLIMUS
  11. PREDNISOLONE [Concomitant]
     Active Substance: PREDNISOLONE
  12. PREDNISONE [Concomitant]
     Active Substance: PREDNISONE
  13. FLUOCINONIDE [Concomitant]
     Active Substance: FLUOCINONIDE

REACTIONS (1)
  - Pruritus [Unknown]
